FAERS Safety Report 4303246-6 (Version None)
Quarter: 2004Q1

REPORT INFORMATION
  Report Type: 
  Country: None (occurrence: None)
  Receive Date: 20040223
  Receipt Date: 20040212
  Transmission Date: 20041129
  Serious: Yes (Hospitalization)
  Sender: FDA-Public Use
  Company Number: 2004199355IE

PATIENT
  Age: 5 Year
  Sex: Male

DRUGS (3)
  1. GENOTROPIN [Suspect]
     Indication: HYPOPITUITARISM
     Dosage: 0.5 MG, QD, SUBCUTANEOUS
     Route: 058
     Dates: start: 20020823
  2. HYDROCORTISONE [Concomitant]
  3. THYROXINE (LEVOTHYROXINE SODIUM) [Concomitant]

REACTIONS (5)
  - HEADACHE [None]
  - LISTLESS [None]
  - LOBAR PNEUMONIA [None]
  - PALLOR [None]
  - SOMNOLENCE [None]
